FAERS Safety Report 12699756 (Version 3)
Quarter: 2016Q4

REPORT INFORMATION
  Report Type: Report from Study
  Country: IE (occurrence: IE)
  Receive Date: 20160830
  Receipt Date: 20161223
  Transmission Date: 20170207
  Serious: Yes (Other)
  Sender: FDA-Public Use
  Company Number: PHFR2016IE006995

PATIENT
  Age: 61 Year
  Sex: Male
  Weight: 73 kg

DRUGS (7)
  1. OLMESAR CH [Concomitant]
     Indication: HYPERTENSION
     Dosage: 1 DF, (12.5+ 40 MG, QD) QD
     Route: 048
  2. LIPITOR [Concomitant]
     Active Substance: ATORVASTATIN CALCIUM
     Indication: BLOOD CHOLESTEROL ABNORMAL
     Dosage: 20 MG, QD
     Route: 048
     Dates: start: 20101203
  3. ZOTON [Concomitant]
     Active Substance: LANSOPRAZOLE
     Indication: GASTRIC PH DECREASED
     Dosage: 30 MG, QD
     Route: 048
     Dates: start: 20020527
  4. NU-SEALS ASPIRIN [Concomitant]
     Indication: PRODUCT USED FOR UNKNOWN INDICATION
     Dosage: 75 MG, QD
     Route: 048
     Dates: start: 20101203
  5. CIMETIDINE [Concomitant]
     Active Substance: CIMETIDINE
     Indication: GASTRIC PH DECREASED
     Dosage: 400 MG, BID
     Route: 048
     Dates: start: 20160713
  6. ULTIBRO BREEZHALER [Suspect]
     Active Substance: GLYCOPYRRONIUM\INDACATEROL
     Indication: CHRONIC OBSTRUCTIVE PULMONARY DISEASE
     Dosage: 1 DF, UNK
     Route: 055
  7. NORTEM [Concomitant]
     Indication: INSOMNIA
     Dosage: 20 MG, QHS
     Route: 048
     Dates: start: 20070123

REACTIONS (3)
  - Rash [Unknown]
  - Inappropriate schedule of drug administration [Unknown]
  - Urticaria [Not Recovered/Not Resolved]

NARRATIVE: CASE EVENT DATE: 20140215
